FAERS Safety Report 15003005 (Version 2)
Quarter: 2018Q2

REPORT INFORMATION
  Report Type: Spontaneous
  Country: DE (occurrence: DE)
  Receive Date: 20180612
  Receipt Date: 20180620
  Transmission Date: 20180711
  Serious: Yes (Hospitalization)
  Sender: FDA-Public Use
  Company Number: DE-TEVA-2018-DE-904276

PATIENT
  Age: 83 Year
  Sex: Male

DRUGS (9)
  1. ASS 100 [Concomitant]
     Active Substance: ASPIRIN
     Dosage: 0-1-0-0
     Route: 065
  2. RAMIPRIL. [Suspect]
     Active Substance: RAMIPRIL
     Dosage: 0.5-0-0.5-0
     Route: 065
  3. PREGABALIN. [Suspect]
     Active Substance: PREGABALIN
     Dosage: 1-0-0-0
     Route: 065
  4. TAMSULOSIN [Concomitant]
     Active Substance: TAMSULOSIN
     Dosage: 0-0-1-0
     Route: 065
  5. ACLIDINIUM BROMIDE. [Suspect]
     Active Substance: ACLIDINIUM BROMIDE
     Dosage: 1-0-1-0 PHRASEBOOK
     Route: 065
  6. VIGANTOLETTEN 1000I.E. [Concomitant]
     Dosage: 0-0-1-0
  7. METOPROLOL. [Suspect]
     Active Substance: METOPROLOL
     Dosage: 0.5-0-0.5-0
     Route: 065
  8. PANTOPRAZOL [Concomitant]
     Active Substance: PANTOPRAZOLE SODIUM
     Dosage: 1-0-0-0
     Route: 065
  9. TORASEMIDE [Suspect]
     Active Substance: TORSEMIDE
     Dosage: 1-0-0-0
     Route: 065

REACTIONS (3)
  - Syncope [Unknown]
  - Wound [Unknown]
  - Fall [Unknown]
